FAERS Safety Report 7357654-X (Version None)
Quarter: 2011Q1

REPORT INFORMATION
  Report Type: 
  Country: None (occurrence: None)
  Receive Date: 20110317
  Receipt Date: 20110310
  Transmission Date: 20110831
  Serious: Yes (Life-Threatening, Other)
  Sender: FDA-Public Use
  Company Number: FR-ELI_LILLY_AND_COMPANY-FR201103003266

PATIENT
  Age: 47 Year
  Sex: Male

DRUGS (5)
  1. CREON [Concomitant]
     Dosage: UNK, UNKNOWN
     Route: 065
  2. GEMZAR [Suspect]
     Indication: PANCREATIC CARCINOMA
     Dosage: UNK, UNKNOWN
     Route: 042
     Dates: start: 20100430, end: 20101029
  3. VASTAREL [Concomitant]
     Dosage: UNK, UNKNOWN
     Route: 065
  4. GEMZAR [Suspect]
     Dates: start: 20100430, end: 20101029
  5. PARACETAMOL [Concomitant]
     Dosage: UNK, UNKNOWN
     Route: 065

REACTIONS (6)
  - PLEURAL EFFUSION [None]
  - GENERALISED OEDEMA [None]
  - VENTRICULAR HYPOKINESIA [None]
  - ASCITES [None]
  - PERICARDIAL FIBROSIS [None]
  - PERICARDIAL EFFUSION [None]
